FAERS Safety Report 18408814 (Version 2)
Quarter: 2020Q4

REPORT INFORMATION
  Report Type: Spontaneous
  Country: JP (occurrence: JP)
  Receive Date: 20201020
  Receipt Date: 20201117
  Transmission Date: 20210114
  Serious: Yes (Hospitalization)
  Sender: FDA-Public Use
  Company Number: JP-009507513-2010JPN001546J

PATIENT
  Age: 94 Year
  Sex: Female
  Weight: 33 kg

DRUGS (11)
  1. CONTOMIN [Concomitant]
     Active Substance: CHLORPROMAZINE
     Indication: INSOMNIA
     Dosage: 12.5 MG,BID (MORNING, EVENING)
     Route: 048
     Dates: start: 20200706, end: 20200731
  2. CONTOMIN [Concomitant]
     Active Substance: CHLORPROMAZINE
     Dosage: 12.5 MILLIGRAM, PRN,AT THE TIME OF SLEEPLESSNESS AND UNREST
     Route: 048
     Dates: start: 20200711, end: 20200711
  3. CONTOMIN [Concomitant]
     Active Substance: CHLORPROMAZINE
     Dosage: 12.5 MG, TID(MORNING, NOON, EVENING)
     Route: 048
     Dates: start: 20200801, end: 20200813
  4. CONTOMIN [Concomitant]
     Active Substance: CHLORPROMAZINE
     Dosage: 12.5 MILLIGRAM, PRN,AT THE TIME OF SLEEPLESSNESS AND UNREST
     Route: 048
     Dates: start: 20200707, end: 20200707
  5. CONTOMIN [Concomitant]
     Active Substance: CHLORPROMAZINE
     Dosage: 12.5 MILLIGRAM, PRN,AT THE TIME OF SLEEPLESSNESS AND UNREST
     Route: 048
     Dates: start: 20200708, end: 20200708
  6. BELSOMRA [Suspect]
     Active Substance: SUVOREXANT
     Indication: INSOMNIA
     Dosage: 15 MILLIGRAM, QD(BEFORE SLEEP(VDS))
     Route: 048
     Dates: start: 20200706, end: 20200821
  7. BELSOMRA [Suspect]
     Active Substance: SUVOREXANT
     Indication: SENILE PSYCHOSIS
  8. CONTOMIN [Concomitant]
     Active Substance: CHLORPROMAZINE
     Dosage: 12.5 MILLIGRAM, PRN,AT THE TIME OF SLEEPLESSNESS AND UNREST
     Route: 048
     Dates: start: 20200712, end: 20200712
  9. CONTOMIN [Concomitant]
     Active Substance: CHLORPROMAZINE
     Dosage: 12.5 MILLIGRAM, PRN,AT THE TIME OF SLEEPLESSNESS AND UNREST
     Route: 048
     Dates: start: 20200710, end: 20200710
  10. CONTOMIN [Concomitant]
     Active Substance: CHLORPROMAZINE
     Dosage: 12.5 MILLIGRAM, PRN,AT THE TIME OF SLEEPLESSNESS AND UNREST
     Route: 048
     Dates: start: 20200807, end: 20200807
  11. CONTOMIN [Concomitant]
     Active Substance: CHLORPROMAZINE
     Dosage: 12.5 MILLIGRAM, PRN,AT THE TIME OF SLEEPLESSNESS AND UNREST
     Route: 048
     Dates: start: 20200811, end: 20200811

REACTIONS (2)
  - Hepatitis acute [Recovering/Resolving]
  - Liver disorder [Recovering/Resolving]

NARRATIVE: CASE EVENT DATE: 20200813
